FAERS Safety Report 20453371 (Version 1)
Quarter: 2022Q1

REPORT INFORMATION
  Report Type: Report from Study
  Country: NO (occurrence: NO)
  Receive Date: 20220210
  Receipt Date: 20220210
  Transmission Date: 20220423
  Serious: Yes (Hospitalization, Other)
  Sender: FDA-Public Use
  Company Number: NO-BAYER-2021A239749

PATIENT

DRUGS (19)
  1. EYLEA [Suspect]
     Active Substance: AFLIBERCEPT
     Indication: Neovascular age-related macular degeneration
     Dosage: 50 ?L, Q4WK OD EYE
     Dates: start: 20191206, end: 20191206
  2. EYLEA [Suspect]
     Active Substance: AFLIBERCEPT
     Dosage: 50 ?L, Q8WK OD EYE
     Dates: start: 20200129, end: 20200129
  3. EYLEA [Suspect]
     Active Substance: AFLIBERCEPT
     Dosage: 50 ?L, Q8WK OD EYE
     Dates: start: 20200417, end: 20200417
  4. EYLEA [Suspect]
     Active Substance: AFLIBERCEPT
     Dosage: 50 ?L, Q8W, INTERVAL OF NEXT INJECTION VISIT: 10
     Dates: start: 20200615, end: 20200615
  5. EYLEA [Suspect]
     Active Substance: AFLIBERCEPT
     Dosage: 50 ?L, Q4WK OD EYE. INTERVAL REDUCED DUE TO NEW FLUID
     Dates: start: 20200827, end: 20200827
  6. EYLEA [Suspect]
     Active Substance: AFLIBERCEPT
     Dosage: 50 ?L, Q4WK OD EYE
     Dates: start: 20200924, end: 20200924
  7. EYLEA [Suspect]
     Active Substance: AFLIBERCEPT
     Dosage: 50 ?L, Q8WK OD EYE
     Dates: start: 20210511, end: 20210511
  8. EYLEA [Suspect]
     Active Substance: AFLIBERCEPT
     Dosage: 50 ?L, Q8W, INTERVAL OF NEXT INJECTION VISIT: 10
     Dates: start: 20210730, end: 20210730
  9. EYLEA [Suspect]
     Active Substance: AFLIBERCEPT
     Dosage: 50 ?L, Q8WK OD EYE
     Dates: start: 20211008, end: 20211008
  10. EYLEA [Concomitant]
     Active Substance: AFLIBERCEPT
     Indication: Neovascular age-related macular degeneration
     Dosage: 50 ?L, ONCE
     Dates: start: 20191121, end: 20191121
  11. EYLEA [Concomitant]
     Active Substance: AFLIBERCEPT
     Dosage: 50 ?L, ONCE
     Dates: start: 20200129, end: 20200129
  12. EYLEA [Concomitant]
     Active Substance: AFLIBERCEPT
     Dosage: 50 ?L, ONCE
     Dates: start: 20200417, end: 20200417
  13. EYLEA [Concomitant]
     Active Substance: AFLIBERCEPT
     Dosage: 50 ?L, ONCE
     Dates: start: 20200615, end: 20200615
  14. EYLEA [Concomitant]
     Active Substance: AFLIBERCEPT
     Dosage: 50 ?L, ONCE
     Dates: start: 20200827, end: 20200827
  15. EYLEA [Concomitant]
     Active Substance: AFLIBERCEPT
     Dosage: 50 ?L, ONCE
     Dates: start: 20210118, end: 20210118
  16. EYLEA [Concomitant]
     Active Substance: AFLIBERCEPT
     Dosage: 50 ?L, ONCE
     Dates: start: 20210316, end: 20210316
  17. EYLEA [Concomitant]
     Active Substance: AFLIBERCEPT
     Dosage: 50 ?L, ONCE
     Dates: start: 20210511, end: 20210511
  18. EYLEA [Concomitant]
     Active Substance: AFLIBERCEPT
     Dosage: 50 ?L, ONCE
     Dates: start: 20210730, end: 20210730
  19. EYLEA [Concomitant]
     Active Substance: AFLIBERCEPT
     Dosage: 50 ?L, ONCE
     Dates: start: 20220126, end: 20220126

REACTIONS (4)
  - Cataract operation complication [Recovered/Resolved]
  - Vitrectomy [Recovered/Resolved]
  - Iris injury [Recovered/Resolved]
  - Posterior capsule rupture [Recovered/Resolved]

NARRATIVE: CASE EVENT DATE: 20210827
